FAERS Safety Report 21219247 (Version 3)
Quarter: 2022Q4

REPORT INFORMATION
  Report Type: Report from Study
  Country: IE (occurrence: IE)
  Receive Date: 20220817
  Receipt Date: 20221029
  Transmission Date: 20230113
  Serious: Yes (Other)
  Sender: FDA-Public Use
  Company Number: IE-ABBVIE-21K-229-3855582-00

PATIENT
  Age: 60 Year
  Sex: Male

DRUGS (48)
  1. CARBIDOPA\LEVODOPA [Suspect]
     Active Substance: CARBIDOPA\LEVODOPA
     Indication: Parkinson^s disease
     Dosage: 1 CASSETTE?CONTINUOUS
     Route: 050
     Dates: start: 20160805, end: 20160809
  2. CARBIDOPA\LEVODOPA [Suspect]
     Active Substance: CARBIDOPA\LEVODOPA
     Dosage: 1 CASSETTE?CONTINUOUS
     Route: 050
     Dates: start: 20160809
  3. CARBIDOPA\LEVODOPA [Suspect]
     Active Substance: CARBIDOPA\LEVODOPA
     Dosage: MORNING DOSE 4 MLS?CONTINUOUS DOSE 1.6ML/HOUR
     Route: 050
     Dates: end: 20210402
  4. CARBIDOPA\LEVODOPA [Suspect]
     Active Substance: CARBIDOPA\LEVODOPA
     Dosage: MORNING DOSE 3MLS?CONTINUOUS DOSE FROM 1.7ML/HOUR
     Route: 050
     Dates: start: 20210402, end: 2021
  5. CARBIDOPA\LEVODOPA [Suspect]
     Active Substance: CARBIDOPA\LEVODOPA
     Dosage: CONTINUOUS DOSE FROM 1.7ML/HOUR, CONTINUOUS
     Route: 050
     Dates: start: 2021, end: 202107
  6. CARBIDOPA\LEVODOPA [Suspect]
     Active Substance: CARBIDOPA\LEVODOPA
     Dosage: CONTINUOUS DOSE 1.6ML/HOUR, CONTINUOUS
     Route: 050
     Dates: start: 202107, end: 202109
  7. CARBIDOPA\LEVODOPA [Suspect]
     Active Substance: CARBIDOPA\LEVODOPA
     Dosage: CONTINUOUS DOSE INCREASED TO 1.7MLS/HR
     Route: 050
     Dates: start: 202109, end: 2022
  8. CARBIDOPA\LEVODOPA [Suspect]
     Active Substance: CARBIDOPA\LEVODOPA
     Dosage: CONTINUOUS DOSE TO 1.6ML/HR
     Route: 050
     Dates: start: 2022, end: 2022
  9. CARBIDOPA\LEVODOPA [Suspect]
     Active Substance: CARBIDOPA\LEVODOPA
     Dosage: MORNING DOSE 3.2ML; CONTINUOUS RATE 1.6ML; EXTRA DOSE 0.4ML
     Route: 050
     Dates: start: 202208, end: 2022
  10. CARBIDOPA\LEVODOPA [Suspect]
     Active Substance: CARBIDOPA\LEVODOPA
     Dosage: DECREASED CONTINUOUS DOSE TO 1.6ML/HR
     Route: 050
     Dates: start: 202210
  11. SENNA [Concomitant]
     Active Substance: SENNA LEAF\SENNOSIDES\SENNOSIDES A AND B
     Indication: Product used for unknown indication
     Dosage: TIME INTERVAL: 0.33333333 DAYS: 1 N/A
  12. SENNA [Concomitant]
     Active Substance: SENNA LEAF\SENNOSIDES\SENNOSIDES A AND B
     Indication: Product used for unknown indication
     Dosage: 1 N/A
     Route: 050
  13. EPILIM [Concomitant]
     Active Substance: VALPROATE SODIUM
     Indication: Product used for unknown indication
  14. EPILIM [Concomitant]
     Active Substance: VALPROATE SODIUM
     Indication: Product used for unknown indication
     Route: 050
  15. MIDODRINE [Concomitant]
     Active Substance: MIDODRINE
     Indication: Product used for unknown indication
     Dosage: TIME INTERVAL: 0.33333333 DAYS
  16. MIDODRINE [Concomitant]
     Active Substance: MIDODRINE
     Indication: Product used for unknown indication
     Route: 050
  17. AZILECT [Concomitant]
     Active Substance: RASAGILINE MESYLATE
     Indication: Product used for unknown indication
     Route: 050
  18. LYRICA [Concomitant]
     Active Substance: PREGABALIN
     Indication: Product used for unknown indication
  19. LYRICA [Concomitant]
     Active Substance: PREGABALIN
     Indication: Product used for unknown indication
     Route: 050
  20. TOPIRAMATE [Concomitant]
     Active Substance: TOPIRAMATE
     Indication: Product used for unknown indication
     Route: 050
  21. BUTRANS [Concomitant]
     Active Substance: BUPRENORPHINE
     Indication: Product used for unknown indication
     Route: 062
  22. DONEPEZIL [Concomitant]
     Active Substance: DONEPEZIL
     Indication: Product used for unknown indication
     Route: 050
  23. FOLIC ACID [Concomitant]
     Active Substance: FOLIC ACID
     Indication: Product used for unknown indication
     Route: 050
  24. LIDOCAINE [Concomitant]
     Active Substance: LIDOCAINE
     Indication: Product used for unknown indication
     Route: 062
  25. LITHIUM [Concomitant]
     Active Substance: LITHIUM
     Indication: Product used for unknown indication
     Route: 050
  26. SINEMET [Concomitant]
     Active Substance: CARBIDOPA\LEVODOPA
     Indication: Product used for unknown indication
     Dosage: SINEMET CR
     Route: 050
  27. SINEMET [Concomitant]
     Active Substance: CARBIDOPA\LEVODOPA
     Indication: Product used for unknown indication
     Dosage: HALF SINEMET?25/100 MG?NIGHT EXTRA
  28. MOVICOL [Concomitant]
     Active Substance: POLYETHYLENE GLYCOL 3350\POTASSIUM CHLORIDE\SODIUM BICARBONATE\SODIUM CHLORIDE
     Indication: Product used for unknown indication
  29. MOVICOL [Concomitant]
     Active Substance: POLYETHYLENE GLYCOL 3350\POTASSIUM CHLORIDE\SODIUM BICARBONATE\SODIUM CHLORIDE
     Indication: Product used for unknown indication
     Route: 050
  30. MOTILIUM [Concomitant]
     Active Substance: DOMPERIDONE
     Indication: Product used for unknown indication
     Dosage: TIME INTERVAL: 0.33333333 DAYS
  31. MOTILIUM [Concomitant]
     Active Substance: DOMPERIDONE
     Indication: Product used for unknown indication
     Route: 050
  32. Half sinemet [Concomitant]
     Indication: Product used for unknown indication
     Dosage: 25/100 MG
  33. Half sinemet [Concomitant]
     Indication: Product used for unknown indication
     Dosage: 25/100 MG
  34. IMOVANE [Concomitant]
     Active Substance: ZOPICLONE
     Indication: Product used for unknown indication
     Route: 050
  35. RIVOTRIL [Concomitant]
     Active Substance: CLONAZEPAM
     Indication: Product used for unknown indication
     Route: 050
  36. RIVOTRIL [Concomitant]
     Active Substance: CLONAZEPAM
     Indication: Product used for unknown indication
  37. RIVOTRIL [Concomitant]
     Active Substance: CLONAZEPAM
     Indication: Product used for unknown indication
  38. BACLOFEN [Concomitant]
     Active Substance: BACLOFEN
     Indication: Product used for unknown indication
  39. FORTICREME COMPLETE [Concomitant]
     Indication: Product used for unknown indication
     Dosage: 2 N/A
  40. FORTICREME COMPLETE [Concomitant]
     Indication: Product used for unknown indication
  41. CALOGEN [Concomitant]
     Indication: Product used for unknown indication
     Dosage: CALOGEN LIQUID
     Route: 050
  42. CALOGEN [Concomitant]
     Indication: Product used for unknown indication
     Dosage: TIME INTERVAL: 0.33333333 DAYS: LIQUID
  43. PRO CAL [Concomitant]
     Indication: Product used for unknown indication
     Dosage: 3 N/A?PRO CAL 3 SACHET
  44. ENSURE [Concomitant]
     Active Substance: AMINO ACIDS\DEXTROSE\ELECTROLYTES NOS\SOYBEAN OIL\VITAMINS
     Indication: Product used for unknown indication
  45. ENSURE [Concomitant]
     Active Substance: AMINO ACIDS\DEXTROSE\ELECTROLYTES NOS\SOYBEAN OIL\VITAMINS
     Indication: Product used for unknown indication
     Route: 050
  46. SOLIFENACIN\TAMSULOSIN [Concomitant]
     Active Substance: SOLIFENACIN\TAMSULOSIN
     Indication: Product used for unknown indication
  47. ASPIRIN [Concomitant]
     Active Substance: ASPIRIN
     Indication: Product used for unknown indication
     Route: 050
  48. ATORVASTATIN [Concomitant]
     Active Substance: ATORVASTATIN
     Indication: Product used for unknown indication
     Route: 050

REACTIONS (26)
  - Cataract [Recovering/Resolving]
  - Contusion [Recovering/Resolving]
  - Weight decreased [Recovering/Resolving]
  - Sitting disability [Recovering/Resolving]
  - Injury [Recovering/Resolving]
  - Psychomotor hyperactivity [Recovering/Resolving]
  - Enteral nutrition [Recovering/Resolving]
  - Bipolar disorder [Recovering/Resolving]
  - Dopamine dysregulation syndrome [Not Recovered/Not Resolved]
  - Mobility decreased [Recovering/Resolving]
  - Drug hypersensitivity [Recovering/Resolving]
  - Freezing phenomenon [Recovered/Resolved]
  - Fatigue [Recovering/Resolving]
  - Fall [Not Recovered/Not Resolved]
  - Dyspepsia [Recovering/Resolving]
  - Pain [Recovering/Resolving]
  - Freezing phenomenon [Recovering/Resolving]
  - Visual impairment [Recovering/Resolving]
  - Dyskinesia [Recovered/Resolved]
  - Drug ineffective [Not Recovered/Not Resolved]
  - Reduced facial expression [Recovering/Resolving]
  - Speech disorder [Recovering/Resolving]
  - Feeling abnormal [Recovering/Resolving]
  - Gait disturbance [Recovering/Resolving]
  - Urinary incontinence [Recovering/Resolving]
  - On and off phenomenon [Unknown]

NARRATIVE: CASE EVENT DATE: 20210101
